FAERS Safety Report 8444501-8 (Version None)
Quarter: 2012Q2

REPORT INFORMATION
  Report Type: 
  Country: None (occurrence: None)
  Receive Date: 20120618
  Receipt Date: 20120613
  Transmission Date: 20120825
  Serious: Yes (Other)
  Sender: FDA-Public Use
  Company Number: GB-BRISTOL-MYERS SQUIBB COMPANY-16645541

PATIENT
  Age: 32 Year
  Sex: Female

DRUGS (2)
  1. ABILIFY [Suspect]
     Dosage: INTIALLY START WITH 10MG
  2. DULOXETINE HYDROCHLORIDE [Concomitant]

REACTIONS (4)
  - SEXUAL DYSFUNCTION [None]
  - CONSTIPATION [None]
  - PSYCHOTIC DISORDER [None]
  - ABDOMINAL DISTENSION [None]
